FAERS Safety Report 14325235 (Version 2)
Quarter: 2018Q1

REPORT INFORMATION
  Report Type: Spontaneous
  Country: JP (occurrence: JP)
  Receive Date: 20171226
  Receipt Date: 20180228
  Transmission Date: 20180509
  Serious: Yes (Death, Hospitalization, Disabling)
  Sender: FDA-Public Use
  Company Number: JP-DSJP-DSJ-2017-155293AA

PATIENT

DRUGS (10)
  1. LUMIGAN [Concomitant]
     Active Substance: BIMATOPROST
     Dosage: UNK, QD, AT NIGHT, BOTH EYES
     Route: 065
  2. ARTIST [Concomitant]
     Active Substance: CARVEDILOL
     Dosage: 10 MG, BID, AFTER BREAKFAST AND DINNER
     Route: 065
  3. LIXIANA TABLETS [Suspect]
     Active Substance: EDOXABAN TOSYLATE
     Indication: DEEP VEIN THROMBOSIS
     Dosage: 30 MG, QD AFTER BREAKFAST
     Route: 048
     Dates: start: 20160416, end: 20160818
  4. TRUSOPT [Concomitant]
     Active Substance: DORZOLAMIDE HYDROCHLORIDE
     Dosage: UNK, TID, BOTH EYES
     Route: 065
     Dates: start: 20120316
  5. UFT [Concomitant]
     Active Substance: TEGAFUR\URACIL
     Dosage: 100 MG, TID, AFTER EACH MEALS
     Route: 065
     Dates: start: 20120420
  6. OLMETEC [Concomitant]
     Active Substance: OLMESARTAN MEDOXOMIL
     Dosage: 20 MG, QD, AFTER BREAKFAST
     Route: 065
  7. ALOSITOL [Concomitant]
     Active Substance: ALLOPURINOL
     Dosage: 100 MG, QD, AFTER BREAKFAST
     Route: 065
  8. PLAVIX [Suspect]
     Active Substance: CLOPIDOGREL BISULFATE
     Indication: CEREBRAL INFARCTION
     Dosage: 75 MG, QD, AFTER BREAKFAST
     Route: 065
     Dates: start: 20151107
  9. NICORANDIL [Concomitant]
     Active Substance: NICORANDIL
     Dosage: 5 MG, TID, AFTER EACH MEALS
     Route: 065
     Dates: start: 20160401
  10. FAMOTIDINE. [Concomitant]
     Active Substance: FAMOTIDINE
     Dosage: 10 MG, QD, AFTER BREAKFAST
     Route: 065
     Dates: start: 20151207

REACTIONS (3)
  - Pituitary haemorrhage [Recovering/Resolving]
  - Bladder cancer [Fatal]
  - Brain stem infarction [Recovering/Resolving]

NARRATIVE: CASE EVENT DATE: 20151029
